FAERS Safety Report 14185721 (Version 1)
Quarter: 2017Q4

REPORT INFORMATION
  Report Type: Spontaneous
  Country: JP (occurrence: JP)
  Receive Date: 20171114
  Receipt Date: 20171114
  Transmission Date: 20180321
  Serious: Yes (Hospitalization, Other)
  Sender: FDA-Public Use
  Company Number: JP-PFIZER INC-2017484841

PATIENT
  Age: 33 Year
  Sex: Male

DRUGS (9)
  1. TETANUS TOXOID [Concomitant]
     Active Substance: TETANUS TOXOIDS
     Indication: PROPHYLAXIS
     Dosage: UNK
  2. SALINE [Concomitant]
     Active Substance: SODIUM CHLORIDE
     Indication: WOUND TREATMENT
     Dosage: UNK
     Route: 061
  3. CHLORHEXIDINE [Concomitant]
     Active Substance: CHLORHEXIDINE
     Indication: WOUND TREATMENT
     Dosage: UNK
     Route: 061
  4. SILVER SULFADIAZINE. [Concomitant]
     Active Substance: SILVER SULFADIAZINE
     Indication: WOUND TREATMENT
     Dosage: UNK
     Route: 061
  5. CEFAZOLIN [Concomitant]
     Active Substance: CEFAZOLIN
     Indication: PROPHYLAXIS
     Dosage: 2 G, DAILY
     Route: 042
  6. BASIC FIBROBLAST GROWTH FACTOR. [Concomitant]
     Active Substance: BASIC FIBROBLAST GROWTH FACTOR
     Indication: WOUND TREATMENT
     Dosage: UNK
     Route: 061
  7. VANCOMYCIN HCL [Suspect]
     Active Substance: VANCOMYCIN HYDROCHLORIDE
     Indication: BACTERIAL INFECTION
     Dosage: 2 G, DAILY
  8. VANCOMYCIN HCL [Suspect]
     Active Substance: VANCOMYCIN HYDROCHLORIDE
     Dosage: 3 G, DAILY
  9. SODIUM HYALURONATE [Concomitant]
     Active Substance: HYALURONATE SODIUM
     Indication: EYE BURNS
     Dosage: UNK
     Route: 047

REACTIONS (1)
  - Hepatic function abnormal [Recovering/Resolving]
